FAERS Safety Report 20291668 (Version 3)
Quarter: 2024Q4

REPORT INFORMATION
  Report Type: Spontaneous
  Country: US (occurrence: US)
  Receive Date: 20220104
  Receipt Date: 20241129
  Transmission Date: 20250115
  Serious: No
  Sender: PFIZER
  Company Number: US-PFIZER INC-202101743752

PATIENT
  Age: 76 Year
  Sex: Female
  Weight: 73.03 kg

DRUGS (1)
  1. PREMPRO [Suspect]
     Active Substance: ESTROGENS, CONJUGATED\MEDROXYPROGESTERONE ACETATE
     Indication: Menopausal symptoms
     Dosage: 0.45MG/1.5 MG, 1X/DAY
     Dates: start: 201709

REACTIONS (1)
  - Hot flush [Unknown]
